FAERS Safety Report 5621564-6 (Version None)
Quarter: 2008Q1

REPORT INFORMATION
  Report Type: 
  Country: None (occurrence: None)
  Receive Date: 20080211
  Receipt Date: 20080201
  Transmission Date: 20080703
  Serious: Yes (Hospitalization)
  Sender: FDA-Public Use
  Company Number: FR-BRISTOL-MYERS SQUIBB COMPANY-14047799

PATIENT
  Age: 57 Year
  Sex: Male

DRUGS (16)
  1. ENDOXAN [Suspect]
     Indication: B-CELL LYMPHOMA
     Route: 042
     Dates: start: 20070720, end: 20070720
  2. METHOTREXATE [Suspect]
     Indication: B-CELL LYMPHOMA
     Route: 042
     Dates: start: 20070719, end: 20070719
  3. VINCRISTINE SULFATE [Suspect]
     Indication: B-CELL LYMPHOMA
     Route: 042
     Dates: start: 20070719, end: 20070724
  4. DOXORUBICIN HCL [Suspect]
     Indication: B-CELL LYMPHOMA
     Route: 042
     Dates: start: 20070720, end: 20070720
  5. MABTHERA [Suspect]
     Indication: B-CELL LYMPHOMA
     Route: 042
     Dates: start: 20070719, end: 20070719
  6. CORTANCYL [Concomitant]
  7. ENOXAPARIN SODIUM [Concomitant]
  8. MACROGOL [Concomitant]
  9. CLONAZEPAM [Concomitant]
  10. NICOTINE [Concomitant]
  11. PAROXETINE HCL [Concomitant]
  12. OMEPRAZOLE [Concomitant]
  13. FOLINIC ACID [Concomitant]
  14. COTRIM [Concomitant]
  15. ONDANSETRON [Concomitant]
  16. CALCIPARINE [Concomitant]
     Dates: end: 20071017

REACTIONS (1)
  - RENAL FAILURE [None]
